FAERS Safety Report 11056005 (Version 2)
Quarter: 2015Q2

REPORT INFORMATION
  Report Type: Report from Study
  Country: US (occurrence: US)
  Receive Date: 20150422
  Receipt Date: 20150508
  Transmission Date: 20150821
  Serious: Yes (Hospitalization, Other)
  Sender: FDA-Public Use
  Company Number: US-PURDUE PHARMA-USA-2015-0122754

PATIENT
  Age: 71 Year
  Sex: Female

DRUGS (1)
  1. OXYCONTIN [Suspect]
     Active Substance: OXYCODONE HYDROCHLORIDE
     Indication: PAIN
     Dosage: 60 MG, TID
     Route: 048
     Dates: start: 2001

REACTIONS (13)
  - Cholelithiasis [Unknown]
  - Sepsis [Recovered/Resolved]
  - Colitis ulcerative [Unknown]
  - Agitation [Not Recovered/Not Resolved]
  - Pain [Unknown]
  - Malaise [Not Recovered/Not Resolved]
  - Cholecystostomy [Recovered/Resolved]
  - Fall [Unknown]
  - Urinary tract infection [Unknown]
  - Haemorrhage [Unknown]
  - Pneumonia [Unknown]
  - Gallbladder disorder [Unknown]
  - Nutritional condition abnormal [Unknown]

NARRATIVE: CASE EVENT DATE: 2001
